FAERS Safety Report 14047495 (Version 4)
Quarter: 2017Q4

REPORT INFORMATION
  Report Type: Spontaneous
  Country: PL (occurrence: PL)
  Receive Date: 20171005
  Receipt Date: 20171122
  Transmission Date: 20180321
  Serious: Yes (Other)
  Sender: FDA-Public Use
  Company Number: PL-ASTELLAS-2017US039543

PATIENT
  Age: 70 Year
  Sex: Female

DRUGS (7)
  1. ACARD [Concomitant]
     Active Substance: ASPIRIN
     Indication: HYPERTENSION
     Dosage: UNK UNK, UNKNOWN FREQ. (FROM 10 YEARS)
     Route: 048
  2. TENSART HCT [Concomitant]
     Indication: HYPERTENSION
     Dosage: UNK UNK, UNKNOWN FREQ.(FROM 10 YEARS)
     Route: 048
  3. METOPROLOL TARTRATE. [Concomitant]
     Active Substance: METOPROLOL TARTRATE
     Indication: HYPERTENSION
     Dosage: UNK UNK, UNKNOWN FREQ. (FROM 10 YEARS)
     Route: 048
  4. VESICARE [Suspect]
     Active Substance: SOLIFENACIN SUCCINATE
     Indication: HYPERTONIC BLADDER
     Route: 048
  5. DIOSMINEX [Concomitant]
     Indication: GASTRIC VARICES
     Dosage: UNK UNK, UNKNOWN FREQ.(FROM MANY YEARS)
     Route: 048
  6. VESICARE [Suspect]
     Active Substance: SOLIFENACIN SUCCINATE
     Indication: HYPERTONIC BLADDER
     Route: 048
  7. VENORUTON                          /00027704/ [Concomitant]
     Indication: GASTRIC VARICES
     Dosage: UNK UNK, UNKNOWN FREQ. (FROM MANY YEARS)
     Route: 048

REACTIONS (5)
  - Drug ineffective [Unknown]
  - Dry mouth [Recovering/Resolving]
  - Blister [Recovering/Resolving]
  - Pain [Recovering/Resolving]
  - Pruritus [Recovering/Resolving]
